FAERS Safety Report 11837995 (Version 1)
Quarter: 2015Q4

REPORT INFORMATION
  Report Type: Spontaneous
  Country: FR (occurrence: FR)
  Receive Date: 20151215
  Receipt Date: 20151215
  Transmission Date: 20160305
  Serious: Yes (Other)
  Sender: FDA-Public Use
  Company Number: FR-PFIZER INC-2015440929

PATIENT
  Age: 16 Year
  Sex: Male

DRUGS (1)
  1. GENOTONORM MINIQUICK [Suspect]
     Active Substance: SOMATROPIN
     Dosage: UNK

REACTIONS (1)
  - Systemic lupus erythematosus [Unknown]
